FAERS Safety Report 24581462 (Version 1)
Quarter: 2024Q4

REPORT INFORMATION
  Report Type: Spontaneous
  Country: NL (occurrence: NL)
  Receive Date: 20241105
  Receipt Date: 20241105
  Transmission Date: 20250115
  Serious: Yes (Hospitalization)
  Sender: TEVA
  Company Number: None

PATIENT
  Age: 88 Year
  Sex: Female
  Weight: 58 kg

DRUGS (1)
  1. VENLAFAXINE [Suspect]
     Active Substance: VENLAFAXINE HYDROCHLORIDE
     Indication: Anxiety
     Dosage: 1 PIECE ONCE A DAY; MGA / BRAND NAME NOT SPECIFIED
     Route: 065
     Dates: start: 20241009, end: 20241012

REACTIONS (2)
  - Hyponatraemia [Recovering/Resolving]
  - Delirium [Recovering/Resolving]
